FAERS Safety Report 14797286 (Version 7)
Quarter: 2020Q2

REPORT INFORMATION
  Report Type: Report from Study
  Country: TW (occurrence: TW)
  Receive Date: 20180424
  Receipt Date: 20200407
  Transmission Date: 20200713
  Serious: Yes (Life-Threatening, Hospitalization)
  Sender: FDA-Public Use
  Company Number: TW-AMGEN-TWNCT2018054305

PATIENT
  Age: 73 Year
  Sex: Female
  Weight: 60 kg

DRUGS (24)
  1. LASIX [Concomitant]
     Active Substance: FUROSEMIDE
     Dosage: 20 MILLIGRAM
     Dates: start: 20180201, end: 20180410
  2. NORVASC [Concomitant]
     Active Substance: AMLODIPINE BESYLATE
     Dosage: 5 MILLIGRAM
     Dates: start: 20180213
  3. LOPERAM [Concomitant]
     Dosage: 2 MILLIGRAM
     Dates: start: 20180320, end: 20180322
  4. FENTANYL. [Concomitant]
     Active Substance: FENTANYL
     Dosage: 12 MICROGRAM
     Dates: start: 20180402, end: 20180514
  5. ULSAFE [Concomitant]
     Dosage: 150 MILLIGRAM
     Dates: start: 20171221, end: 20180403
  6. CRAVIT [Concomitant]
     Active Substance: LEVOFLOXACIN
     Dosage: 750 MILLIGRAM
     Dates: start: 20180221, end: 20180224
  7. SENOKOT [Concomitant]
     Active Substance: SENNOSIDES
     Dosage: 15 MILLIGRAM
     Dates: start: 20180331, end: 20180404
  8. CARFILZOMIB [Suspect]
     Active Substance: CARFILZOMIB
     Indication: PLASMA CELL MYELOMA
     Dosage: 90 MG, PER CHEMO REGIM
     Route: 042
     Dates: start: 20180206, end: 20180423
  9. FILGRASTIM [Concomitant]
     Active Substance: FILGRASTIM
     Dosage: 300 MICROGRAM AND 300 MILLIGRAM
     Dates: start: 20180220, end: 20180228
  10. DEPYRETIN [Concomitant]
     Active Substance: ACETAMINOPHEN
     Dosage: 500 MILLIGRAM
     Dates: start: 20180221, end: 20180222
  11. CHLORPHENIRAMINE. [Concomitant]
     Active Substance: CHLORPHENIRAMINE
     Dosage: 5 MILLIGRAM
     Dates: start: 20180201, end: 20180503
  12. CONCOR [Concomitant]
     Active Substance: BISOPROLOL FUMARATE
     Dosage: 1.25 MILLIGRAM
     Dates: start: 20180206, end: 20180213
  13. G-CSF [Concomitant]
     Active Substance: GRANULOCYTE COLONY-STIMULATING FACTOR NOS
     Dosage: 300 MICROGRAM
     Dates: start: 20180213, end: 20180214
  14. DEXAMETHASONE. [Concomitant]
     Active Substance: DEXAMETHASONE
     Indication: PLASMA CELL MYELOMA
     Dosage: 20 MILLIGRAM
     Route: 048
     Dates: start: 20180206
  15. FUROSEMIDE. [Concomitant]
     Active Substance: FUROSEMIDE
     Dosage: 20 MILLIGRAM
     Dates: start: 20180213, end: 20180504
  16. ULTRACET [Concomitant]
     Active Substance: ACETAMINOPHEN\TRAMADOL HYDROCHLORIDE
     Dosage: 1 UNK
     Dates: start: 20180331, end: 20180409
  17. METHASONE [Concomitant]
     Dosage: 5 MILLIGRAM
     Dates: start: 20180201, end: 20180410
  18. CHLORPHENAMINE [Concomitant]
     Active Substance: CHLORPHENIRAMINE MALEATE
     Dosage: 5 MILLIGRAM
     Dates: start: 20180213, end: 20180410
  19. DELCOPAN [Concomitant]
     Dosage: 60 MILLIGRAM
     Dates: start: 20180213, end: 20180304
  20. NORMAL SALINE [Concomitant]
     Active Substance: SODIUM CHLORIDE
     Dosage: 250 MILLILITER
     Route: 042
     Dates: start: 20180206
  21. BONEFOS [Concomitant]
     Active Substance: CLODRONATE DISODIUM
     Dosage: 400 MILLIGRAM
     Dates: start: 20171221, end: 20180206
  22. DIOVAN [Concomitant]
     Active Substance: VALSARTAN
     Dosage: 80 MILLIGRAM
     Dates: start: 20180206
  23. MORPHINE SULFATE. [Concomitant]
     Active Substance: MORPHINE SULFATE
     Dosage: 15 MILLIGRAM
     Dates: start: 20180417, end: 20180504
  24. TRAMADOL HCL [Concomitant]
     Active Substance: TRAMADOL HYDROCHLORIDE
     Dosage: 100 MILLIGRAM
     Dates: start: 20180331, end: 20180403

REACTIONS (2)
  - Thrombocytopenia [Not Recovered/Not Resolved]
  - Plasma cell myeloma [Not Recovered/Not Resolved]

NARRATIVE: CASE EVENT DATE: 20180420
